FAERS Safety Report 18183671 (Version 1)
Quarter: 2020Q3

REPORT INFORMATION
  Report Type: Spontaneous
  Country: US (occurrence: US)
  Receive Date: 20200822
  Receipt Date: 20200822
  Transmission Date: 20201103
  Serious: No
  Sender: FDA-Public Use
  Company Number: US-ANIPHARMA-2019-US-021490

PATIENT
  Sex: 0

DRUGS (3)
  1. IBRANCE [Suspect]
     Active Substance: PALBOCICLIB
     Dosage: UNK
  2. ANASTROZOLE. [Suspect]
     Active Substance: ANASTROZOLE
     Indication: PRODUCT USED FOR UNKNOWN INDICATION
     Dosage: UNK
     Route: 065
  3. AROMASIN [Suspect]
     Active Substance: EXEMESTANE
     Dosage: UNK
     Route: 065

REACTIONS (4)
  - Breast necrosis [Unknown]
  - Drug intolerance [Unknown]
  - Breast cyst [Unknown]
  - Osteopenia [Unknown]

NARRATIVE: CASE EVENT DATE: 20181011
